FAERS Safety Report 20111776 (Version 1)
Quarter: 2021Q4

REPORT INFORMATION
  Report Type: Spontaneous
  Country: None (occurrence: US)
  Receive Date: 20211125
  Receipt Date: 20211125
  Transmission Date: 20220303
  Serious: No
  Sender: FDA-Public Use
  Company Number: US-Y-mAbs Therapeutics-2122310

PATIENT
  Age: 5 Year
  Sex: Female
  Weight: 18.3 kg

DRUGS (1)
  1. DANYELZA [Suspect]
     Active Substance: NAXITAMAB-GQGK
     Indication: Neuroblastoma
     Route: 042
     Dates: start: 20210927, end: 20210927

REACTIONS (3)
  - Hypotension [Recovered/Resolved]
  - Pain [Recovered/Resolved]
  - Urticaria [Recovered/Resolved]

NARRATIVE: CASE EVENT DATE: 20210927
